FAERS Safety Report 7131031-9 (Version None)
Quarter: 2010Q4

REPORT INFORMATION
  Report Type: 
  Country: None (occurrence: None)
  Receive Date: 20101201
  Receipt Date: 20101125
  Transmission Date: 20110411
  Serious: Yes (Disabling)
  Sender: FDA-Public Use
  Company Number: B0686625A

PATIENT
  Sex: Female
  Weight: 59 kg

DRUGS (5)
  1. TYKERB [Suspect]
     Indication: BREAST CANCER
     Dosage: 1250MG PER DAY
     Route: 048
     Dates: start: 20091110, end: 20091121
  2. TYKERB [Suspect]
     Dosage: 1000MG PER DAY
     Route: 048
     Dates: start: 20091215, end: 20100103
  3. XELODA [Concomitant]
     Dosage: 2400MG PER DAY
     Dates: start: 20091110, end: 20100103
  4. GLYMACKEN [Concomitant]
     Route: 042
     Dates: start: 20091110, end: 20100118
  5. ORGADRONE [Concomitant]
     Dates: start: 20091110, end: 20100118

REACTIONS (1)
  - RASH GENERALISED [None]
